FAERS Safety Report 9617568 (Version 4)
Quarter: 2013Q4

REPORT INFORMATION
  Report Type: Report from Study
  Country: US (occurrence: US)
  Receive Date: 20131011
  Receipt Date: 20131203
  Transmission Date: 20140711
  Serious: Yes (Other)
  Sender: FDA-Public Use
  Company Number: US-B.I. PHARMACEUTICALS,INC./RIDGEFIELD-2013-BI-31545BP

PATIENT
  Age: 76 Year
  Sex: Female

DRUGS (10)
  1. GILOTRIF [Suspect]
     Indication: NON-SMALL CELL LUNG CANCER
     Dosage: 40 MG
     Route: 048
     Dates: start: 20130916, end: 20130926
  2. GILOTRIF [Suspect]
     Indication: LUNG NEOPLASM MALIGNANT
     Dosage: 40 MG
     Route: 048
     Dates: start: 20131001
  3. IMMODIUM [Concomitant]
  4. DOXYCYCLINE [Concomitant]
     Dosage: 100 MG
  5. SINGULAR [Concomitant]
     Indication: HYPERSENSITIVITY
     Dosage: 10 MG
  6. ALLEGRA [Concomitant]
     Dosage: 180 MG
  7. NEXIUM [Concomitant]
     Dosage: 40 MG
  8. LOSARTAN [Concomitant]
     Indication: BLOOD PRESSURE
     Dosage: 50 MG
  9. FLU SHOT [Concomitant]
     Dates: start: 20131021
  10. GRANISETRON TRANSDERMAL SYSTEMS 34.3 MG PATCH [Concomitant]
     Dosage: 4.9 MG
     Route: 062

REACTIONS (13)
  - Transient ischaemic attack [Recovered/Resolved]
  - Diarrhoea [Not Recovered/Not Resolved]
  - Nausea [Not Recovered/Not Resolved]
  - Vomiting [Not Recovered/Not Resolved]
  - Decreased appetite [Unknown]
  - Fatigue [Unknown]
  - Diarrhoea [Unknown]
  - Diarrhoea [Not Recovered/Not Resolved]
  - Abdominal pain upper [Not Recovered/Not Resolved]
  - Diarrhoea [Recovered/Resolved]
  - Constipation [Not Recovered/Not Resolved]
  - Vomiting [Not Recovered/Not Resolved]
  - Weight decreased [Not Recovered/Not Resolved]
